FAERS Safety Report 7288704-7 (Version None)
Quarter: 2011Q1

REPORT INFORMATION
  Report Type: 
  Country: None (occurrence: None)
  Receive Date: 20110201
  Receipt Date: 20110124
  Transmission Date: 20110831
  Serious: Yes (Disabling)
  Sender: FDA-Public Use
  Company Number: 2011MA000729

PATIENT
  Age: 67 Year
  Sex: Male

DRUGS (9)
  1. PREV MEDS [Concomitant]
  2. PREDNISOLONE [Concomitant]
  3. MIRTAZAPINE [Suspect]
     Dates: start: 20110114
  4. CITALOPRAM [Concomitant]
  5. DOXYCYCLINE [Concomitant]
  6. VENTOLIN [Concomitant]
  7. NITRAZEPAM [Concomitant]
  8. MIRTAZAPINE [Concomitant]
  9. TIOTROPIUM BROMIDE [Concomitant]

REACTIONS (1)
  - ANGER [None]
